FAERS Safety Report 21617432 (Version 1)
Quarter: 2022Q4

REPORT INFORMATION
  Report Type: Spontaneous
  Country: CN (occurrence: CN)
  Receive Date: 20221119
  Receipt Date: 20221119
  Transmission Date: 20230113
  Serious: Yes (Other)
  Sender: FDA-Public Use
  Company Number: None

PATIENT
  Age: 3 Year
  Sex: Female
  Weight: 12.4 kg

DRUGS (4)
  1. CYCLOPHOSPHAMIDE [Suspect]
     Active Substance: CYCLOPHOSPHAMIDE
     Indication: Retroperitoneal neoplasm
     Dosage: (DOSAGE FORM: INJECTION) 0.6 G, QD (DILUTED WITH 4:1 GLUCOSE AND SODIUM CHLORIDE 100ML), D1-2
     Route: 041
     Dates: start: 20220926, end: 20220927
  2. DEXTROSE\SODIUM CHLORIDE [Suspect]
     Active Substance: DEXTROSE\SODIUM CHLORIDE
     Indication: Medication dilution
     Dosage: 100 ML, QD (USED TO DILUTE 0.6 G OF CYCLOPHOSPHAMIDE), D1-2
     Route: 041
     Dates: start: 20220926, end: 20220927
  3. SODIUM CHLORIDE [Suspect]
     Active Substance: SODIUM CHLORIDE
     Indication: Medication dilution
     Dosage: 250 ML, QD (USED TO DILUTE 10 MG OF PHARMORUBICIN)
     Route: 041
     Dates: start: 20220926, end: 20220926
  4. EPIRUBICIN [Suspect]
     Active Substance: EPIRUBICIN
     Indication: Retroperitoneal neoplasm
     Dosage: 10 MG, QD (DILUTED WITH 0.9% NS 250 ML)
     Route: 041
     Dates: start: 20220926, end: 20220926

REACTIONS (1)
  - Myelosuppression [Recovering/Resolving]

NARRATIVE: CASE EVENT DATE: 20221003
